FAERS Safety Report 20695780 (Version 2)
Quarter: 2022Q2

REPORT INFORMATION
  Report Type: Spontaneous
  Country: ML (occurrence: ML)
  Receive Date: 20220411
  Receipt Date: 20220427
  Transmission Date: 20220721
  Serious: Yes (Congenital Anomaly)
  Sender: FDA-Public Use
  Company Number: 20210649419

PATIENT
  Sex: Female

DRUGS (6)
  1. LAMIVUDINE [Suspect]
     Active Substance: LAMIVUDINE
     Indication: Product used for unknown indication
     Dosage: ONE COURSE, FIRST TRIMESTER
     Route: 064
     Dates: start: 20161207
  2. DARUNAVIR [Suspect]
     Active Substance: DARUNAVIR
     Indication: Product used for unknown indication
     Dosage: ONE COURSE, FIRST TRIMESTER
     Route: 064
     Dates: start: 20210621
  3. DOLUTEGRAVIR [Suspect]
     Active Substance: DOLUTEGRAVIR
     Indication: Product used for unknown indication
     Dosage: ONE COURSE, FIRST TRIMESTER
     Route: 064
     Dates: start: 20190930, end: 20210423
  4. LOPINAVIR\RITONAVIR [Suspect]
     Active Substance: LOPINAVIR\RITONAVIR
     Indication: Product used for unknown indication
     Dosage: ONE COURSE, FIRST TRIMESTER
     Route: 064
     Dates: start: 20210423, end: 20210621
  5. TENOFOVIR DISOPROXIL FUMARATE [Suspect]
     Active Substance: TENOFOVIR DISOPROXIL FUMARATE
     Indication: Product used for unknown indication
     Dosage: ONE COURSE, FIRST TRIMESTER
     Route: 064
     Dates: start: 20161207
  6. RITONAVIR [Suspect]
     Active Substance: RITONAVIR
     Indication: Product used for unknown indication
     Dosage: ONE COURSE, SECOND TRIMESTER
     Route: 064
     Dates: start: 20210621

REACTIONS (2)
  - Congenital anomaly [Unknown]
  - Foetal exposure during pregnancy [Unknown]
